FAERS Safety Report 14020600 (Version 1)
Quarter: 2017Q3

REPORT INFORMATION
  Report Type: Spontaneous
  Country: US (occurrence: US)
  Receive Date: 20170928
  Receipt Date: 20170928
  Transmission Date: 20171128
  Serious: No
  Sender: FDA-Public Use
  Company Number: US-PFIZER INC-2017206162

PATIENT
  Age: 69 Year
  Sex: Female

DRUGS (1)
  1. XELJANZ [Suspect]
     Active Substance: TOFACITINIB CITRATE
     Dosage: 5 MG, UNK
     Dates: start: 201501

REACTIONS (6)
  - Somnolence [Unknown]
  - Pyrexia [Unknown]
  - Dysstasia [Unknown]
  - Dizziness [Unknown]
  - Viral infection [Unknown]
  - Upper respiratory tract infection [Unknown]
